FAERS Safety Report 14355849 (Version 1)
Quarter: 2018Q1

REPORT INFORMATION
  Report Type: Spontaneous
  Country: US (occurrence: US)
  Receive Date: 20180104
  Receipt Date: 20180104
  Transmission Date: 20180509
  Serious: Yes (Other)
  Sender: FDA-Public Use
  Company Number: None

PATIENT
  Age: 59 Year
  Sex: Female
  Weight: 63 kg

DRUGS (9)
  1. XELODA [Suspect]
     Active Substance: CAPECITABINE
     Indication: METASTASES TO BONE
     Dosage: ?          QUANTITY:84 TABLET(S);?
     Route: 048
     Dates: start: 20171228, end: 20180104
  2. MVI [Concomitant]
     Active Substance: VITAMINS
  3. FENTANYL. [Concomitant]
     Active Substance: FENTANYL
  4. VALIUM [Concomitant]
     Active Substance: DIAZEPAM
  5. XELODA [Suspect]
     Active Substance: CAPECITABINE
     Indication: LUNG CANCER METASTATIC
     Dosage: ?          QUANTITY:84 TABLET(S);?
     Route: 048
     Dates: start: 20171228, end: 20180104
  6. XELODA [Suspect]
     Active Substance: CAPECITABINE
     Indication: BREAST CANCER
     Dosage: ?          QUANTITY:84 TABLET(S);?
     Route: 048
     Dates: start: 20171228, end: 20180104
  7. VITAMIN D [Concomitant]
     Active Substance: CHOLECALCIFEROL
  8. PHENERGAN [Concomitant]
     Active Substance: PROMETHAZINE HYDROCHLORIDE
  9. NORCO [Concomitant]
     Active Substance: ACETAMINOPHEN\HYDROCODONE BITARTRATE

REACTIONS (10)
  - Thirst [None]
  - Diarrhoea [None]
  - Neuropathy peripheral [None]
  - Lymphoedema [None]
  - Tachycardia [None]
  - Hyperhidrosis [None]
  - Chest discomfort [None]
  - Dyspnoea [None]
  - Fatigue [None]
  - Visual impairment [None]

NARRATIVE: CASE EVENT DATE: 20180103
